FAERS Safety Report 4963705-X (Version None)
Quarter: 2006Q1

REPORT INFORMATION
  Report Type: 
  Country: None (occurrence: None)
  Receive Date: 20060330
  Receipt Date: 20060320
  Transmission Date: 20060701
  Serious: Yes (Death, Life-Threatening, Hospitalization)
  Sender: FDA-Public Use
  Company Number: CLOF-10107

PATIENT
  Age: 70 Year
  Sex: Male

DRUGS (6)
  1. CLOFARABINE [Suspect]
     Indication: ACUTE MYELOID LEUKAEMIA
     Dosage: 37 MG/M2 QD X 5 IV
     Route: 042
     Dates: start: 20050606, end: 20050905
  2. CO-TRIMOXAZOLE [Concomitant]
  3. SLOW-K [Concomitant]
  4. CHLORHEXADINE MOUTHWASH [Concomitant]
  5. NYSTATIN [Concomitant]
  6. ITRACONAZOLE [Concomitant]

REACTIONS (27)
  - ASTHENIA [None]
  - BACTERIA STOOL IDENTIFIED [None]
  - BLOOD PRESSURE INCREASED [None]
  - BLOOD PRESSURE SYSTOLIC INCREASED [None]
  - CELLULITIS [None]
  - CEREBROVASCULAR ACCIDENT [None]
  - CEREBROVASCULAR DISORDER [None]
  - COMPUTERISED TOMOGRAM ABNORMAL [None]
  - DYSPNOEA [None]
  - ENCEPHALITIS HERPES [None]
  - ERYTHEMA [None]
  - EXCORIATION [None]
  - GENERAL PHYSICAL HEALTH DETERIORATION [None]
  - GRAND MAL CONVULSION [None]
  - GRIP STRENGTH DECREASED [None]
  - HAEMOGLOBIN DECREASED [None]
  - HYPERREFLEXIA [None]
  - HYPERTONIA [None]
  - HYPOKALAEMIA [None]
  - INCONTINENCE [None]
  - JOINT SWELLING [None]
  - MUSCLE TWITCHING [None]
  - NEUTROPENIC SEPSIS [None]
  - PYREXIA [None]
  - SYNCOPE [None]
  - THROMBOSIS [None]
  - URINARY TRACT INFECTION [None]
